FAERS Safety Report 8278571-7 (Version None)
Quarter: 2012Q2

REPORT INFORMATION
  Report Type: 
  Country: None (occurrence: None)
  Receive Date: 20120412
  Receipt Date: 20110801
  Transmission Date: 20120825
  Serious: No
  Sender: FDA-Public Use
  Company Number: US-ASTRAZENECA-2011SE45996

PATIENT
  Age: 31 Year
  Sex: Female
  Weight: 54.4 kg

DRUGS (1)
  1. NEXIUM [Suspect]
     Indication: CHOLELITHIASIS
     Route: 048
     Dates: start: 20110730

REACTIONS (2)
  - OFF LABEL USE [None]
  - ABDOMINAL PAIN [None]
